FAERS Safety Report 6632825-6 (Version None)
Quarter: 2010Q1

REPORT INFORMATION
  Report Type: 
  Country: None (occurrence: None)
  Receive Date: 20100312
  Receipt Date: 20100208
  Transmission Date: 20100710
  Serious: No
  Sender: FDA-Public Use
  Company Number: US-BIOGENIDEC-2010BI004360

PATIENT
  Sex: Male

DRUGS (2)
  1. AVONEX [Suspect]
     Indication: MULTIPLE SCLEROSIS
     Route: 030
     Dates: start: 19990503, end: 20040607
  2. AVONEX [Suspect]
     Route: 030
     Dates: start: 20090516

REACTIONS (2)
  - COGNITIVE DISORDER [None]
  - MEMORY IMPAIRMENT [None]
